FAERS Safety Report 5108626-7 (Version None)
Quarter: 2006Q3

REPORT INFORMATION
  Report Type: 
  Country: None (occurrence: None)
  Receive Date: 20060915
  Receipt Date: 20060628
  Transmission Date: 20061208
  Serious: Yes (Hospitalization, Other)
  Sender: FDA-Public Use
  Company Number: 2006-06-1991

PATIENT
  Age: 58 Year
  Sex: Male

DRUGS (4)
  1. PEG-INTRON [Suspect]
     Indication: MYELOFIBROSIS
     Dosage: 50 MCG; QOW; SC;  25 MCG; QOW; SC
     Route: 058
     Dates: start: 20051101, end: 20060601
  2. PEG-INTRON [Suspect]
     Indication: MYELOFIBROSIS
     Dosage: 50 MCG; QOW; SC;  25 MCG; QOW; SC
     Route: 058
     Dates: start: 20051101, end: 20060601
  3. DOXEPIN HCL [Suspect]
     Indication: DRUG USE FOR UNKNOWN INDICATION
     Dosage: 1.9 GM
     Dates: start: 20060626, end: 20060626
  4. DIAZEPAM [Suspect]
     Indication: DRUG USE FOR UNKNOWN INDICATION
     Dosage: 250 MG
     Dates: start: 20060626, end: 20060626

REACTIONS (14)
  - CONFUSIONAL STATE [None]
  - DEPRESSION [None]
  - DISTURBANCE IN ATTENTION [None]
  - DYSARTHRIA [None]
  - FALL [None]
  - HYPOGLOSSAL NERVE DISORDER [None]
  - LYMPHOEDEMA [None]
  - NERVOUS SYSTEM DISORDER [None]
  - OFF LABEL USE [None]
  - PARESIS [None]
  - RHABDOMYOLYSIS [None]
  - SOMNOLENCE [None]
  - STRESS [None]
  - THERAPEUTIC AGENT TOXICITY [None]
